FAERS Safety Report 18253445 (Version 1)
Quarter: 2020Q3

REPORT INFORMATION
  Report Type: Spontaneous
  Country: US (occurrence: US)
  Receive Date: 20200910
  Receipt Date: 20200910
  Transmission Date: 20201103
  Serious: Yes (Disabling, Other)
  Sender: FDA-Public Use
  Company Number: US-PURDUE-USA-2020-0165528

PATIENT

DRUGS (1)
  1. OXYCONTIN [Suspect]
     Active Substance: OXYCODONE HYDROCHLORIDE
     Indication: SURGERY
     Dosage: 40 MG, DAILY
     Route: 048
     Dates: start: 200108

REACTIONS (4)
  - Amnesia [Unknown]
  - Disability [Not Recovered/Not Resolved]
  - Drug dependence [Unknown]
  - Drug tolerance [Unknown]

NARRATIVE: CASE EVENT DATE: 201106
